FAERS Safety Report 25884157 (Version 1)
Quarter: 2025Q4

REPORT INFORMATION
  Report Type: Spontaneous
  Country: US (occurrence: US)
  Receive Date: 20251006
  Receipt Date: 20251006
  Transmission Date: 20260118
  Serious: Yes (Hospitalization)
  Sender: BRISTOL-MYERS SQUIBB COMPANY
  Company Number: US-BRISTOL-MYERS SQUIBB COMPANY-2025-135168

PATIENT
  Age: 80 Year
  Sex: Female
  Weight: 81.19 kg

DRUGS (1)
  1. POMALYST [Suspect]
     Active Substance: POMALIDOMIDE
     Indication: Breast cancer female
     Dosage: DAILY FOR 21 DAYS AND 7 DAYS OFF
     Dates: end: 20250920

REACTIONS (1)
  - Conduction disorder [Not Recovered/Not Resolved]
